FAERS Safety Report 9407506 (Version 1)
Quarter: 2013Q3

REPORT INFORMATION
  Report Type: Report from Study
  Country: DE (occurrence: DE)
  Receive Date: 20130718
  Receipt Date: 20130718
  Transmission Date: 20140515
  Serious: Yes (Other)
  Sender: FDA-Public Use
  Company Number: PHHY2013DE055525

PATIENT
  Age: 47 Year
  Sex: Female

DRUGS (6)
  1. FTY 720 [Suspect]
     Indication: MULTIPLE SCLEROSIS
     Dosage: 0.5 MG, QD
     Route: 048
     Dates: start: 20110920, end: 20130308
  2. OPIPRAMOL [Interacting]
     Indication: DEPRESSION
     Dosage: 25 MG, TID
     Route: 048
     Dates: start: 20110914
  3. OPIPRAMOL [Interacting]
     Indication: ANXIETY
  4. FAMPRIDINE [Interacting]
     Indication: PARAPARESIS
     Dosage: 10 MG, BID
     Route: 048
  5. FAMPRIDINE [Interacting]
     Indication: GAIT DISTURBANCE
  6. TOLPERISONE [Concomitant]
     Indication: MUSCLE SPASTICITY
     Dosage: 100 MG, TID
     Route: 048
     Dates: start: 20100816

REACTIONS (6)
  - Atrioventricular block complete [Unknown]
  - Palpitations [Recovered/Resolved]
  - Dizziness [Recovered/Resolved]
  - Hypertension [Unknown]
  - Myocardial ischaemia [Unknown]
  - Drug interaction [Unknown]
